FAERS Safety Report 20166219 (Version 2)
Quarter: 2022Q1

REPORT INFORMATION
  Report Type: Spontaneous
  Country: US (occurrence: US)
  Receive Date: 20211209
  Receipt Date: 20220303
  Transmission Date: 20220423
  Serious: No
  Sender: FDA-Public Use
  Company Number: US-BRISTOL-MYERS SQUIBB COMPANY-BMS-2021-133463

PATIENT
  Age: 74 Year
  Sex: Male

DRUGS (2)
  1. SPRYCEL [Suspect]
     Active Substance: DASATINIB
     Indication: Chronic myeloid leukaemia
     Dosage: 70 MILLIGRAM, DAILY
     Route: 048
     Dates: start: 20211203
  2. SPRYCEL [Suspect]
     Active Substance: DASATINIB
     Dosage: 100 MILLIGRAM, DAILY
     Route: 048
     Dates: start: 20211206

REACTIONS (5)
  - Vomiting [Recovered/Resolved]
  - Headache [Unknown]
  - Fatigue [Unknown]
  - Rash pruritic [Unknown]
  - Skin disorder [Unknown]

NARRATIVE: CASE EVENT DATE: 20211206
